FAERS Safety Report 6465961-8 (Version None)
Quarter: 2009Q4

REPORT INFORMATION
  Report Type: 
  Country: None (occurrence: None)
  Receive Date: 20091202
  Receipt Date: 20091104
  Transmission Date: 20100525
  Serious: Yes (Other)
  Sender: FDA-Public Use
  Company Number: US-RB-026060-09

PATIENT
  Age: 37 Year
  Sex: Male

DRUGS (1)
  1. DELSYM ADULT COUGH SYRUP [Suspect]
     Dosage: TOOK TWO TEASPOONS A DAY OF THE PRODUCT FOR TWO DAYS
     Route: 048
     Dates: start: 20091101

REACTIONS (1)
  - TONSILLAR HYPERTROPHY [None]
